FAERS Safety Report 5309367-3 (Version None)
Quarter: 2007Q2

REPORT INFORMATION
  Report Type: 
  Country: None (occurrence: None)
  Receive Date: 20070425
  Receipt Date: 20070425
  Transmission Date: 20071010
  Serious: Yes (Hospitalization)
  Sender: FDA-Public Use
  Company Number: None

PATIENT
  Age: 57 Year
  Sex: Male
  Weight: 64 kg

DRUGS (11)
  1. DEPAKOTE [Suspect]
     Indication: SCHIZOAFFECTIVE DISORDER
     Dosage: 1500MG PO QHS
     Route: 048
  2. CLONAZEPAM [Concomitant]
  3. ASPIRIN [Concomitant]
  4. DILTIAZEM [Concomitant]
  5. LEXAPRO [Concomitant]
  6. MULTI-VITAMIN [Concomitant]
  7. PRAVASTATIN [Concomitant]
  8. PRILOSEC [Concomitant]
  9. RISPERDAL [Concomitant]
  10. B12 [Concomitant]
  11. TRAZODONE HCL [Concomitant]

REACTIONS (2)
  - AMINO ACID LEVEL INCREASED [None]
  - LOSS OF CONSCIOUSNESS [None]
